FAERS Safety Report 6555114-7 (Version None)
Quarter: 2010Q1

REPORT INFORMATION
  Report Type: 
  Country: None (occurrence: None)
  Receive Date: 20100126
  Receipt Date: 20100126
  Transmission Date: 20100710
  Serious: No
  Sender: FDA-Public Use
  Company Number: None

PATIENT
  Sex: Female
  Weight: 50.8029 kg

DRUGS (2)
  1. CAPAISCIN/ANALGESIC CREAM) (CAPSCAIN) [Suspect]
     Indication: MYALGIA
     Dosage: Q 6-8 HRS TOPICAL
     Route: 061
  2. CAPAISCIN/ANALGESIC CREAM) (CAPSCAIN) [Suspect]
     Indication: NEURALGIA
     Dosage: Q 6-8 HRS TOPICAL
     Route: 061

REACTIONS (3)
  - FEELING HOT [None]
  - PAIN IN EXTREMITY [None]
  - PARAESTHESIA [None]
